FAERS Safety Report 10173360 (Version 1)
Quarter: 2014Q2

REPORT INFORMATION
  Report Type: Spontaneous
  Country: US (occurrence: None)
  Receive Date: 20140416
  Receipt Date: 20140416
  Transmission Date: 20141212
  Serious: No
  Sender: FDA-Public Use
  Company Number: 163-POMAL-14010854

PATIENT
  Age: 66 Year
  Sex: Male

DRUGS (4)
  1. POMALYST [Suspect]
     Indication: PLASMA CELL MYELOMA
     Dosage: 4 MG, 21 IN 21 D, PO
     Route: 048
     Dates: start: 20131223
  2. AMLODIPINE BESYLATE AND BENAZEPRIL HCL (AMLODIPINE BESYLATE W/ BENAZEPRIL HYDROCHLOR) [Concomitant]
  3. DEPO-TESTOSTERONE (TESTOSTERONE CIPIONATE) [Concomitant]
  4. METOPROLOL TARTRATE (METOPROLOL TARTRATE) [Concomitant]

REACTIONS (2)
  - Hypertension [None]
  - Hyperglycaemia [None]
